FAERS Safety Report 21377520 (Version 2)
Quarter: 2022Q3

REPORT INFORMATION
  Report Type: Report from Study
  Country: US (occurrence: US)
  Receive Date: 20220926
  Receipt Date: 20220929
  Transmission Date: 20221027
  Serious: Yes (Life-Threatening, Hospitalization, Other)
  Sender: FDA-Public Use
  Company Number: US-BRISTOL-MYERS SQUIBB COMPANY-2022-109147

PATIENT
  Age: 75 Year
  Sex: Female
  Weight: 81 kg

DRUGS (15)
  1. POMALIDOMIDE [Suspect]
     Active Substance: POMALIDOMIDE
     Indication: Plasma cell myeloma
     Route: 048
     Dates: start: 20220428
  2. REVLIMID [Suspect]
     Active Substance: LENALIDOMIDE
     Indication: Plasma cell myeloma
     Dosage: 14 DAYS ON 7 DAYS OFF?OTHER REASON FOR STOPPING: UPFRONT STEM CELL TRANSPLANT
     Route: 048
     Dates: start: 20150216, end: 20150701
  3. REVLIMID [Suspect]
     Active Substance: LENALIDOMIDE
     Dosage: REASON FOR STOPPING: RELAPSE/PROGRESSIVE DISEASE?FREQ: 21 DAYS ON, 7 DAYS OFF
     Route: 048
     Dates: start: 20180713, end: 20210126
  4. DEXAMETHASONE [Suspect]
     Active Substance: DEXAMETHASONE
     Indication: Plasma cell myeloma
     Dosage: OTHER REASON FOR STOPPING: UPFRONT STEM CELL TRANSPLANT, Q 7 DAYS
     Route: 048
     Dates: start: 20150216, end: 20150701
  5. DEXAMETHASONE [Suspect]
     Active Substance: DEXAMETHASONE
     Dosage: THER SCHEDULE: DAYS 1, 8, 15 OF CYCLE 1
     Route: 042
     Dates: start: 20210202, end: 20210216
  6. DEXAMETHASONE [Suspect]
     Active Substance: DEXAMETHASONE
     Dosage: REASON FOR STOPPING: COMPLETED COURSE
     Route: 042
     Dates: start: 20210223, end: 20210223
  7. DEXAMETHASONE [Suspect]
     Active Substance: DEXAMETHASONE
     Dosage: REASON FOR STOPPING: COMPLETED COURSE?OTHER SCHEDULE: DAY 8 OF CYCLE 2
     Route: 042
     Dates: start: 20210302, end: 20210302
  8. DEXAMETHASONE [Suspect]
     Active Substance: DEXAMETHASONE
     Dosage: WEEKLY
     Route: 048
     Dates: start: 20210309
  9. DEXAMETHASONE [Suspect]
     Active Substance: DEXAMETHASONE
     Route: 048
     Dates: start: 20220428
  10. VELCADE [Suspect]
     Active Substance: BORTEZOMIB
     Indication: Plasma cell myeloma
     Dosage: OTHER REASON FOR STOPPING: UPFRONT STEM CELL TRANSPLANT?1.3 MG/M^2, FREQ: DAYS 1, 4, 8, 11 OF 21 DAY
     Route: 058
     Dates: start: 20150216, end: 20150608
  11. VELCADE [Suspect]
     Active Substance: BORTEZOMIB
     Dosage: SCHEDULE: 1X WEEKLY, NO REST PERIOD: DAY 1 Q 7D, 1.3 MG/M^2
     Route: 058
     Dates: start: 20210202, end: 20210309
  12. VELCADE [Suspect]
     Active Substance: BORTEZOMIB
     Dosage: SCHEDULE: 1X WEEKLY, NO REST PERIOD: DAY 1 Q 7D?1.0 MG/M^2
     Route: 058
     Dates: start: 20210825
  13. MELPHALAN [Suspect]
     Active Substance: MELPHALAN
     Indication: Plasma cell myeloma
     Dosage: REASON FOR STOPPING: COMPLETED COURSE: 200 MG/M^2, GIVEN 1 TIME
     Route: 042
     Dates: start: 20150722, end: 20150722
  14. DARZALEX FASPRO [Suspect]
     Active Substance: DARATUMUMAB\HYALURONIDASE-FIHJ
     Indication: Plasma cell myeloma
     Dosage: OTHER SCHEDULE: DAYS 1, 8, 15, EVERY 21 DAYS
     Route: 058
     Dates: start: 20210202
  15. DARZALEX FASPRO [Suspect]
     Active Substance: DARATUMUMAB\HYALURONIDASE-FIHJ
     Dosage: IV
     Route: 048
     Dates: start: 20220428, end: 20220707

REACTIONS (3)
  - Acute respiratory failure [Unknown]
  - Off label use [Unknown]
  - Parainfluenzae virus infection [Unknown]

NARRATIVE: CASE EVENT DATE: 20220707
